FAERS Safety Report 5662961-2 (Version None)
Quarter: 2008Q1

REPORT INFORMATION
  Report Type: 
  Country: None (occurrence: None)
  Receive Date: 20080313
  Receipt Date: 20080310
  Transmission Date: 20080703
  Serious: Yes (Life-Threatening, Hospitalization)
  Sender: FDA-Public Use
  Company Number: GB-ASTRAZENECA-2008GB00466

PATIENT
  Age: 22 Year
  Sex: Male

DRUGS (7)
  1. QUETIAPINE FUMARATE [Suspect]
     Route: 048
  2. CITALOPRAM [Suspect]
     Route: 065
  3. RISPERIDONE [Suspect]
     Route: 065
  4. ZOPICLONE [Suspect]
     Route: 065
  5. ALCOHOL [Suspect]
     Route: 065
  6. CANNABIS [Concomitant]
  7. COCAINE [Concomitant]

REACTIONS (1)
  - INTENTIONAL OVERDOSE [None]
